FAERS Safety Report 7819530-5 (Version None)
Quarter: 2011Q4

REPORT INFORMATION
  Report Type: 
  Country: None (occurrence: None)
  Receive Date: 20111018
  Receipt Date: 20100916
  Transmission Date: 20120403
  Serious: No
  Sender: FDA-Public Use
  Company Number: US-ASTRAZENECA-2010SE39473

PATIENT
  Age: 79 Year
  Sex: Female

DRUGS (2)
  1. SYMBICORT [Suspect]
     Indication: ASTHMA
     Dosage: 160/4.5 TWO TIMES A DAY
     Route: 055
     Dates: start: 20090101
  2. ATENOLOL [Concomitant]

REACTIONS (2)
  - WHEEZING [None]
  - INCORRECT DOSE ADMINISTERED [None]
